FAERS Safety Report 5509497-7 (Version None)
Quarter: 2007Q4

REPORT INFORMATION
  Report Type: 
  Country: None (occurrence: None)
  Receive Date: 20071107
  Receipt Date: 20071026
  Transmission Date: 20080405
  Serious: Yes (Hospitalization)
  Sender: FDA-Public Use
  Company Number: PFIZER INC-2007089811

PATIENT
  Age: 47 Year
  Sex: Male
  Weight: 85 kg

DRUGS (3)
  1. SUTENT [Suspect]
     Indication: SMALL CELL LUNG CANCER STAGE UNSPECIFIED
     Route: 048
     Dates: start: 20070822, end: 20071007
  2. CISPLATIN [Suspect]
     Indication: SMALL CELL LUNG CANCER STAGE UNSPECIFIED
     Route: 042
     Dates: start: 20070822, end: 20071002
  3. ETOPOSIDE [Suspect]
     Indication: SMALL CELL LUNG CANCER STAGE UNSPECIFIED
     Route: 042
     Dates: start: 20070822, end: 20071004

REACTIONS (5)
  - HYPONATRAEMIA [None]
  - INFECTION [None]
  - NEUTROPHIL COUNT DECREASED [None]
  - THROMBOSIS [None]
  - WHITE BLOOD CELL COUNT DECREASED [None]
